FAERS Safety Report 7195439-8 (Version None)
Quarter: 2010Q4

REPORT INFORMATION
  Report Type: 
  Country: None (occurrence: None)
  Receive Date: 20101223
  Receipt Date: 20101002
  Transmission Date: 20110411
  Serious: Yes (Hospitalization)
  Sender: FDA-Public Use
  Company Number: US-AMGEN-KDL442983

PATIENT

DRUGS (1)
  1. ENBREL [Suspect]
     Indication: PSORIATIC ARTHROPATHY
     Dosage: 50 MG, QWK
     Route: 058
     Dates: start: 20000101

REACTIONS (4)
  - INJECTION SITE ERYTHEMA [None]
  - LYMPHOEDEMA [None]
  - PAIN IN EXTREMITY [None]
  - PNEUMONIA [None]
